FAERS Safety Report 10688789 (Version 2)
Quarter: 2015Q1

REPORT INFORMATION
  Report Type: Other
  Country: SE (occurrence: SE)
  Receive Date: 20150103
  Receipt Date: 20150103
  Transmission Date: 20150720
  Serious: Yes (Hospitalization, Other)
  Sender: FDA-Public Use
  Company Number: SE-AUROBINDO-AUR-APL-2014-05167

PATIENT
  Age: 60 Year
  Sex: Male

DRUGS (4)
  1. METOPROLOL AUROBINDO, FILMDRAGERAD TABLETT 100MG [Suspect]
     Active Substance: METOPROLOL TARTRATE
     Indication: BLOOD PRESSURE ABNORMAL
  2. ADALAT [Suspect]
     Active Substance: NIFEDIPINE
     Indication: PRODUCT USED FOR UNKNOWN INDICATION
     Dosage: 20 MG,UNK,
     Route: 065
     Dates: start: 20131219, end: 20131223
  3. METOPROLOL AUROBINDO, FILMDRAGERAD TABLETT 100MG [Suspect]
     Active Substance: METOPROLOL TARTRATE
     Indication: HEART RATE INCREASED
     Dosage: 100 MG,ONCE A DAY,
     Route: 065
     Dates: start: 20130617, end: 20131213
  4. TROMBYL [Suspect]
     Active Substance: ASPIRIN
     Indication: PRODUCT USED FOR UNKNOWN INDICATION
     Dosage: 75 MG,UNK,
     Route: 065
     Dates: start: 20131220, end: 20131227

REACTIONS (3)
  - Skin reaction [Unknown]
  - Systemic sclerosis [Recovering/Resolving]
  - Drug eruption [Recovering/Resolving]

NARRATIVE: CASE EVENT DATE: 20131210
